FAERS Safety Report 10368650 (Version 3)
Quarter: 2015Q2

REPORT INFORMATION
  Report Type: Spontaneous
  Country: JP (occurrence: JP)
  Receive Date: 20140807
  Receipt Date: 20150402
  Transmission Date: 20150821
  Serious: Yes (Hospitalization, Other)
  Sender: FDA-Public Use
  Company Number: PHHY2013JP095796

PATIENT
  Age: 37 Year
  Sex: Female

DRUGS (4)
  1. AFINITOR [Suspect]
     Active Substance: EVEROLIMUS
     Route: 048
     Dates: start: 20130304, end: 20130511
  2. AFINITOR [Suspect]
     Active Substance: EVEROLIMUS
     Route: 048
     Dates: start: 20130725
  3. AFINITOR [Suspect]
     Active Substance: EVEROLIMUS
     Dosage: 5 MG, DAILY
     Route: 048
     Dates: start: 20130725
  4. AFINITOR [Suspect]
     Active Substance: EVEROLIMUS
     Indication: ANGIOMYOLIPOMA
     Dosage: 10 MG, DAILY
     Route: 048
     Dates: start: 20130304, end: 20130511

REACTIONS (16)
  - Cell marker increased [Recovered/Resolved]
  - Abdominal pain [Recovering/Resolving]
  - Vomiting [Not Recovered/Not Resolved]
  - Constipation [Recovering/Resolving]
  - Nausea [Recovering/Resolving]
  - Pyrexia [Recovering/Resolving]
  - Pneumonitis [Recovering/Resolving]
  - Subileus [Unknown]
  - Lipoma [Unknown]
  - Inflammation [Unknown]
  - Stomatitis [Unknown]
  - Interstitial lung disease [Recovering/Resolving]
  - Abdominal distension [Recovered/Resolved]
  - Gastrointestinal obstruction [Recovering/Resolving]
  - Gait disturbance [Unknown]
  - Anaemia [Recovering/Resolving]

NARRATIVE: CASE EVENT DATE: 20130511
